FAERS Safety Report 22351127 (Version 1)
Quarter: 2023Q2

REPORT INFORMATION
  Report Type: Spontaneous
  Country: US (occurrence: US)
  Receive Date: 20230522
  Receipt Date: 20230522
  Transmission Date: 20230721
  Serious: No
  Sender: FDA-Public Use
  Company Number: US-Stemline Therapeutics, Inc.-2023ST000196

PATIENT
  Age: 73 Year
  Sex: Female

DRUGS (3)
  1. ORSERDU [Suspect]
     Active Substance: ELACESTRANT
     Indication: Product used for unknown indication
     Route: 048
  2. NAPROXEN [Concomitant]
     Active Substance: NAPROXEN
     Indication: Gouty arthritis
     Dates: start: 202303
  3. CORTISONE [Concomitant]
     Active Substance: CORTISONE
     Indication: Gouty arthritis
     Dates: start: 202303

REACTIONS (4)
  - Dysphonia [Not Recovered/Not Resolved]
  - Lymphadenopathy [Recovered/Resolved]
  - Tenderness [Recovered/Resolved]
  - Gastrooesophageal reflux disease [Not Recovered/Not Resolved]

NARRATIVE: CASE EVENT DATE: 20230201
